FAERS Safety Report 12441692 (Version 2)
Quarter: 2016Q2

REPORT INFORMATION
  Report Type: Spontaneous
  Country: US (occurrence: US)
  Receive Date: 20160607
  Receipt Date: 20160610
  Transmission Date: 20160815
  Serious: Yes (Other)
  Sender: FDA-Public Use
  Company Number: US-JNJFOC-20160525471

PATIENT
  Sex: Male
  Weight: 73.94 kg

DRUGS (1)
  1. LISTERINE ORIGINAL [Suspect]
     Active Substance: EUCALYPTOL\MENTHOL\METHYL SALICYLATE\THYMOL
     Indication: BREATH ODOUR
     Route: 048
     Dates: start: 1996

REACTIONS (4)
  - Blood glucose decreased [Recovered/Resolved]
  - Intentional product misuse [Recovered/Resolved]
  - Loss of consciousness [Recovered/Resolved]
  - Incorrect route of drug administration [Recovered/Resolved]

NARRATIVE: CASE EVENT DATE: 1996
